FAERS Safety Report 6026924-X (Version None)
Quarter: 2009Q1

REPORT INFORMATION
  Report Type: 
  Country: None (occurrence: None)
  Receive Date: 20090105
  Receipt Date: 20081229
  Transmission Date: 20090719
  Serious: Yes (Hospitalization)
  Sender: FDA-Public Use
  Company Number: US-AVENTIS-200818664US

PATIENT
  Age: 90 Year
  Sex: Female

DRUGS (1)
  1. LOVENOX [Suspect]
     Dosage: DOSE: UNK

REACTIONS (5)
  - CEREBROVASCULAR ACCIDENT [None]
  - CYTOMEGALOVIRUS INFECTION [None]
  - ILEUS [None]
  - RECTAL HAEMORRHAGE [None]
  - THROMBOCYTOPENIA [None]
